FAERS Safety Report 15745625 (Version 1)
Quarter: 2018Q4

REPORT INFORMATION
  Report Type: Spontaneous
  Country: US (occurrence: US)
  Receive Date: 20181220
  Receipt Date: 20181220
  Transmission Date: 20190205
  Serious: No
  Sender: FDA-Public Use
  Company Number: US-ASTRAZENECA-2018SF60728

PATIENT
  Sex: Female

DRUGS (2)
  1. COMBINATION VITAMIN D3 5000 IU WITH CALCIUM [Concomitant]
     Indication: VITAMIN SUPPLEMENTATION
     Dosage: 5000.0IU UNKNOWN
     Route: 065
  2. TAGRISSO [Suspect]
     Active Substance: OSIMERTINIB
     Dosage: UNKNOWN
     Route: 048
     Dates: start: 20181023

REACTIONS (1)
  - Swelling face [Unknown]
